FAERS Safety Report 15161057 (Version 2)
Quarter: 2018Q3

REPORT INFORMATION
  Report Type: Report from Study
  Country: US (occurrence: US)
  Receive Date: 20180718
  Receipt Date: 20180813
  Transmission Date: 20181010
  Serious: Yes (Other)
  Sender: FDA-Public Use
  Company Number: US-JAZZ-2017-US-004501

PATIENT
  Sex: Female

DRUGS (7)
  1. XYREM [Suspect]
     Active Substance: SODIUM OXYBATE
     Dosage: 3 G, BID
     Route: 048
     Dates: start: 201507, end: 201509
  2. ESCITALOPRAM [Concomitant]
     Active Substance: ESCITALOPRAM OXALATE
  3. XYREM [Suspect]
     Active Substance: SODIUM OXYBATE
     Indication: NARCOLEPSY
     Dosage: 2.25 G, BID
     Route: 048
     Dates: start: 201506, end: 201507
  4. METHYLPHENIDATE. [Concomitant]
     Active Substance: METHYLPHENIDATE
  5. XYREM [Suspect]
     Active Substance: SODIUM OXYBATE
     Dosage: 4.5 G, BID
     Route: 048
     Dates: start: 201509
  6. HYDROXYZINE [Suspect]
     Active Substance: HYDROXYZINE HYDROCHLORIDE
     Indication: ANXIETY
  7. SERTRALINE [Suspect]
     Active Substance: SERTRALINE HYDROCHLORIDE
     Indication: PRODUCT USED FOR UNKNOWN INDICATION

REACTIONS (6)
  - Anxiety [Not Recovered/Not Resolved]
  - Suicidal ideation [Recovered/Resolved]
  - Nightmare [Recovered/Resolved]
  - Palpitations [Recovering/Resolving]
  - Depression [Recovering/Resolving]
  - Panic attack [Unknown]
